FAERS Safety Report 7273472-5 (Version None)
Quarter: 2011Q1

REPORT INFORMATION
  Report Type: 
  Country: None (occurrence: None)
  Receive Date: 20110203
  Receipt Date: 20101222
  Transmission Date: 20110831
  Serious: Yes (Life-Threatening, Other)
  Sender: FDA-Public Use
  Company Number: US-BAXTER-2010BH003543

PATIENT
  Age: 59 Year
  Sex: Male
  Weight: 88 kg

DRUGS (16)
  1. PLAVIX [Suspect]
     Indication: ANGIOPLASTY
     Route: 042
     Dates: start: 20080512, end: 20080512
  2. MIDAZOLAM HCL [Suspect]
     Indication: ANGIOPLASTY
     Route: 042
     Dates: start: 20080512, end: 20080512
  3. SIMVASTATIN [Concomitant]
     Indication: PRODUCT USED FOR UNKNOWN INDICATION
     Route: 065
  4. METOPROLOL [Concomitant]
     Indication: PRODUCT USED FOR UNKNOWN INDICATION
     Route: 065
  5. ACETAMINOPHEN [Concomitant]
     Indication: PRODUCT USED FOR UNKNOWN INDICATION
     Route: 065
  6. FENTANYL CITRATE [Suspect]
     Indication: ANGIOPLASTY
     Route: 042
     Dates: start: 20080512
  7. ASPIRIN [Concomitant]
     Indication: PRODUCT USED FOR UNKNOWN INDICATION
     Route: 065
  8. HYDROCHLOROTHIAZIDE [Concomitant]
     Indication: PRODUCT USED FOR UNKNOWN INDICATION
     Route: 065
  9. ONDANSETRON [Concomitant]
     Indication: PRODUCT USED FOR UNKNOWN INDICATION
     Route: 065
  10. NITROGLYCERIN [Concomitant]
     Indication: PRODUCT USED FOR UNKNOWN INDICATION
     Route: 065
  11. HEPARIN SODIUM INJECTION [Suspect]
     Indication: ANGIOPLASTY
     Route: 042
     Dates: start: 20080512, end: 20080501
  12. INTEGRILIN [Suspect]
     Indication: ANGIOPLASTY
     Route: 042
     Dates: start: 20080512, end: 20080512
  13. LOVENOX [Concomitant]
     Indication: PRODUCT USED FOR UNKNOWN INDICATION
     Route: 065
  14. LISINOPRIL [Concomitant]
     Indication: PRODUCT USED FOR UNKNOWN INDICATION
     Route: 065
  15. HEPARIN SODIUM INJECTION [Suspect]
     Indication: CORONARY ARTERIAL STENT INSERTION
     Route: 042
     Dates: start: 20080512, end: 20080501
  16. MORPHINE [Concomitant]
     Indication: PRODUCT USED FOR UNKNOWN INDICATION
     Route: 065

REACTIONS (15)
  - CEREBELLAR HAEMORRHAGE [None]
  - DYSPNOEA [None]
  - SWOLLEN TONGUE [None]
  - MOBILITY DECREASED [None]
  - HEADACHE [None]
  - CARDIAC ARREST [None]
  - MENTAL STATUS CHANGES [None]
  - PHARYNGEAL OEDEMA [None]
  - SINUS BRADYCARDIA [None]
  - BACK PAIN [None]
  - DEEP VEIN THROMBOSIS [None]
  - HYPOTENSION [None]
  - NAUSEA [None]
  - INTRACRANIAL ANEURYSM [None]
  - HYPERSENSITIVITY [None]
